FAERS Safety Report 13504119 (Version 2)
Quarter: 2017Q2

REPORT INFORMATION
  Report Type: Spontaneous
  Country: DE (occurrence: DE)
  Receive Date: 20170502
  Receipt Date: 20170602
  Transmission Date: 20170830
  Serious: Yes (Other)
  Sender: FDA-Public Use
  Company Number: ALCN2017DE003007

PATIENT
  Sex: Male

DRUGS (2)
  1. CORTISONE [Concomitant]
     Active Substance: CORTISONE\HYDROCORTISONE
     Indication: PRODUCT USED FOR UNKNOWN INDICATION
     Route: 065
  2. SIMBRINZA [Suspect]
     Active Substance: BRIMONIDINE TARTRATE\BRINZOLAMIDE
     Indication: PRODUCT USED FOR UNKNOWN INDICATION
     Dosage: 2 GTT, PRN
     Route: 047

REACTIONS (8)
  - Lacrimation increased [Unknown]
  - Nasal herpes [Unknown]
  - Fungal infection [Unknown]
  - Dyspnoea [Unknown]
  - Oral herpes [Unknown]
  - Bacterial infection [Unknown]
  - Hyperkeratosis [Unknown]
  - Herpes ophthalmic [Unknown]
